FAERS Safety Report 22041108 (Version 1)
Quarter: 2023Q1

REPORT INFORMATION
  Report Type: Spontaneous
  Country: US (occurrence: US)
  Receive Date: 20230227
  Receipt Date: 20230227
  Transmission Date: 20230417
  Serious: No
  Sender: FDA-Public Use
  Company Number: US-JNJFOC-20230239359

PATIENT
  Sex: Female
  Weight: 23.13 kg

DRUGS (1)
  1. CHILDRENS MOTRIN [Suspect]
     Active Substance: IBUPROFEN
     Indication: Pyrexia
     Dosage: EVERY 6 HOURS EXCEPT THIS AFTERNOON THE GOT ONE DOSE AT 1:45PM AND THEN ANOTHER AT 4:15PM BY ACCIDEN
     Route: 065
     Dates: start: 20230216

REACTIONS (1)
  - Extra dose administered [Unknown]
